FAERS Safety Report 5090769-8 (Version None)
Quarter: 2006Q3

REPORT INFORMATION
  Report Type: 
  Country: None (occurrence: None)
  Receive Date: 20060823
  Receipt Date: 20060808
  Transmission Date: 20061208
  Serious: Yes (Hospitalization, Other)
  Sender: FDA-Public Use
  Company Number: PHBS2006GB12014

PATIENT
  Age: 56 Year
  Sex: Male

DRUGS (3)
  1. CYCLOSPORINE [Suspect]
     Indication: HEART TRANSPLANT
     Dosage: 10 MG/KG, QD; 200 MG/ML
     Dates: start: 20040201
  2. PREDNISOLONE [Suspect]
     Indication: HEART TRANSPLANT
     Dosage: 15 MG, QD 7.5 MG, QD
     Dates: start: 20040201
  3. MYCOPHENOLATE MOFETIL [Suspect]
     Indication: HEART TRANSPLANT
     Dosage: 1.25 G, BID
     Dates: start: 20040201

REACTIONS (17)
  - ACINETOBACTER BACTERAEMIA [None]
  - ACINETOBACTER INFECTION [None]
  - CEREBRAL INFARCTION [None]
  - CLOSTRIDIUM DIFFICILE COLITIS [None]
  - COAGULOPATHY [None]
  - GRAND MAL CONVULSION [None]
  - HEMIPARESIS [None]
  - MEDIASTINITIS [None]
  - PULMONARY OEDEMA [None]
  - RENAL FAILURE ACUTE [None]
  - RESPIRATORY DISTRESS [None]
  - SEPSIS [None]
  - SOFT TISSUE NECROSIS [None]
  - STERNOTOMY [None]
  - SURGERY [None]
  - TRACHEOSTOMY [None]
  - WOUND DEBRIDEMENT [None]
